FAERS Safety Report 8002277-2 (Version None)
Quarter: 2011Q4

REPORT INFORMATION
  Report Type: 
  Country: None (occurrence: None)
  Receive Date: 20111222
  Receipt Date: 20110219
  Transmission Date: 20120403
  Serious: No
  Sender: FDA-Public Use
  Company Number: US-GLAXOSMITHKLINE-A0914532A

PATIENT
  Age: 53 Year
  Sex: Female

DRUGS (1)
  1. COMMIT [Suspect]
     Indication: PRODUCT USED FOR UNKNOWN INDICATION
     Route: 002
     Dates: start: 20110211, end: 20110218

REACTIONS (6)
  - NAUSEA [None]
  - PAIN [None]
  - HEADACHE [None]
  - ORAL PAIN [None]
  - MOUTH ULCERATION [None]
  - ADVERSE REACTION [None]
